APPROVED DRUG PRODUCT: GABAPENTIN
Active Ingredient: GABAPENTIN
Strength: 300MG
Dosage Form/Route: CAPSULE;ORAL
Application: A076606 | Product #002
Applicant: SUN PHARMACEUTICAL INDUSTRIES LTD
Approved: Oct 7, 2005 | RLD: No | RS: No | Type: DISCN